FAERS Safety Report 6387770-0 (Version None)
Quarter: 2009Q4

REPORT INFORMATION
  Report Type: 
  Country: None (occurrence: None)
  Receive Date: 20091005
  Receipt Date: 20090922
  Transmission Date: 20100525
  Serious: Yes (Other)
  Sender: FDA-Public Use
  Company Number: US-MYLANLABS-2009S1016771

PATIENT
  Age: 19 Year
  Sex: Female

DRUGS (4)
  1. AMNESTEEM [Suspect]
     Route: 048
     Dates: start: 20090504
  2. CLARAVIS [Suspect]
     Route: 048
  3. CLARAVIS [Suspect]
     Route: 048
  4. AMNESTEEM [Suspect]
     Route: 048
     Dates: end: 20090920

REACTIONS (2)
  - DRUG EXPOSURE DURING PREGNANCY [None]
  - TREATMENT NONCOMPLIANCE [None]
